FAERS Safety Report 10566348 (Version 2)
Quarter: 2014Q4

REPORT INFORMATION
  Report Type: Report from Study
  Country: JP (occurrence: JP)
  Receive Date: 20141105
  Receipt Date: 20141217
  Transmission Date: 20150529
  Serious: Yes (Hospitalization)
  Sender: FDA-Public Use
  Company Number: JP-GLAXOSMITHKLINE-JP2014JPN012612

PATIENT
  Age: 18 Year
  Sex: Male

DRUGS (27)
  1. BRUFEN [Concomitant]
     Active Substance: IBUPROFEN
     Dosage: 200 MG, UNK
     Dates: start: 20140613, end: 20140613
  2. POLARAMINE [Concomitant]
     Active Substance: DEXCHLORPHENIRAMINE MALEATE
     Dosage: 2 MG, UNK
     Dates: start: 20140613, end: 20140613
  3. BRUFEN [Concomitant]
     Active Substance: IBUPROFEN
     Dosage: 200 MG, UNK
     Dates: start: 20140718, end: 20140718
  4. POLARAMINE [Concomitant]
     Active Substance: DEXCHLORPHENIRAMINE MALEATE
     Dosage: 2 MG, UNK
     Dates: start: 20140627, end: 20140627
  5. POLARAMINE [Concomitant]
     Active Substance: DEXCHLORPHENIRAMINE MALEATE
     Dosage: 2 MG, UNK
     Dates: start: 20140718, end: 20140718
  6. OFATUMUMAB [Suspect]
     Active Substance: OFATUMUMAB
     Dosage: 2000 MG, QD
     Route: 041
     Dates: start: 20140627, end: 20140627
  7. OFATUMUMAB [Suspect]
     Active Substance: OFATUMUMAB
     Dosage: 2000 MG, QD
     Route: 041
     Dates: start: 20140718, end: 20140718
  8. BRUFEN [Concomitant]
     Active Substance: IBUPROFEN
     Dosage: 200 MG, UNK
     Dates: start: 20140627, end: 20140627
  9. BRUFEN [Concomitant]
     Active Substance: IBUPROFEN
     Dosage: 200 MG, UNK
     Dates: start: 20140704, end: 20140704
  10. OFATUMUMAB [Suspect]
     Active Substance: OFATUMUMAB
     Dosage: 2000 MG, QD
     Route: 041
     Dates: start: 20140605, end: 20140605
  11. OFATUMUMAB [Suspect]
     Active Substance: OFATUMUMAB
     Dosage: 2000 MG, QD
     Route: 041
     Dates: start: 20140711, end: 20140711
  12. BRUFEN [Concomitant]
     Active Substance: IBUPROFEN
     Dosage: 200 MG, UNK
     Dates: start: 20140711, end: 20140711
  13. POLARAMINE [Concomitant]
     Active Substance: DEXCHLORPHENIRAMINE MALEATE
     Dosage: 2 MG, UNK
     Dates: start: 20140620, end: 20140620
  14. POLARAMINE [Concomitant]
     Active Substance: DEXCHLORPHENIRAMINE MALEATE
     Dosage: 2 MG, UNK
     Dates: start: 20140711, end: 20140711
  15. PREDNISOLONE. [Concomitant]
     Active Substance: PREDNISOLONE
     Indication: PREMEDICATION
     Dosage: 100 MG, UNK
     Dates: start: 20140529, end: 20140529
  16. BRUFEN [Concomitant]
     Active Substance: IBUPROFEN
     Dosage: 200 MG, UNK
     Dates: start: 20140605, end: 20140605
  17. PREDNISOLONE. [Concomitant]
     Active Substance: PREDNISOLONE
     Dosage: 100 MG, UNK
     Dates: start: 20140605, end: 20140605
  18. POLARAMINE [Concomitant]
     Active Substance: DEXCHLORPHENIRAMINE MALEATE
     Dosage: 2 MG, UNK
     Dates: start: 20140605, end: 20140605
  19. OFATUMUMAB [Suspect]
     Active Substance: OFATUMUMAB
     Indication: CHRONIC LYMPHOCYTIC LEUKAEMIA
     Dosage: 300 MG, QD
     Route: 041
     Dates: start: 20140529, end: 20140529
  20. POLARAMINE [Concomitant]
     Active Substance: DEXCHLORPHENIRAMINE MALEATE
     Dosage: 2 MG, UNK
     Dates: start: 20140704, end: 20140704
  21. OFATUMUMAB [Suspect]
     Active Substance: OFATUMUMAB
     Dosage: 2000 MG, QD
     Route: 041
     Dates: start: 20140613, end: 20140613
  22. OFATUMUMAB [Suspect]
     Active Substance: OFATUMUMAB
     Dosage: 2000 MG, QD
     Route: 041
     Dates: start: 20140620, end: 20140620
  23. OFATUMUMAB [Suspect]
     Active Substance: OFATUMUMAB
     Dosage: 2000 MG, QD
     Route: 041
     Dates: start: 20140704, end: 20140704
  24. BRUFEN [Concomitant]
     Active Substance: IBUPROFEN
     Indication: PREMEDICATION
     Dosage: 200 MG, UNK
     Dates: start: 20140529, end: 20140529
  25. BRUFEN [Concomitant]
     Active Substance: IBUPROFEN
     Dosage: 200 MG, UNK
     Dates: start: 20140620, end: 20140620
  26. POLARAMINE [Concomitant]
     Active Substance: DEXCHLORPHENIRAMINE MALEATE
     Indication: PREMEDICATION
     Dosage: 2 MG, UNK
     Dates: start: 20140529, end: 20140529
  27. FLUDARABINE [Concomitant]
     Active Substance: FLUDARABINE PHOSPHATE
     Indication: CHRONIC LYMPHOCYTIC LEUKAEMIA

REACTIONS (2)
  - Hepatic function abnormal [Recovered/Resolved]
  - Rash [Recovered/Resolved]

NARRATIVE: CASE EVENT DATE: 20140529
